FAERS Safety Report 13618815 (Version 2)
Quarter: 2017Q3

REPORT INFORMATION
  Report Type: Report from Study
  Country: US (occurrence: US)
  Receive Date: 20170606
  Receipt Date: 20170713
  Transmission Date: 20171127
  Serious: Yes (Death, Hospitalization)
  Sender: FDA-Public Use
  Company Number: US-ACTELION-A-US2017-154808

PATIENT
  Age: 73 Year
  Sex: Female
  Weight: 76.19 kg

DRUGS (22)
  1. DESENEX NOS [Concomitant]
     Active Substance: CLOTRIMAZOLE OR MICONAZOLE NITRATE
     Dosage: 2%, TID
     Route: 061
  2. BUMETANIDE. [Concomitant]
     Active Substance: BUMETANIDE
     Dosage: 1 MG, BID
     Route: 048
  3. KLOR-CON [Concomitant]
     Active Substance: POTASSIUM CHLORIDE
     Dosage: 20 MEQ, BID
     Route: 048
  4. LISINOPRIL. [Concomitant]
     Active Substance: LISINOPRIL
     Dosage: 5 MG, QD
     Route: 048
  5. ACETIC ACID. [Concomitant]
     Active Substance: ACETIC ACID
     Dosage: UNK, QD
  6. HEPARIN [Concomitant]
     Active Substance: HEPARIN SODIUM
     Dosage: 5000 U, TID
     Route: 058
  7. NOVOLOG [Concomitant]
     Active Substance: INSULIN ASPART
     Dosage: UNK, TID
     Route: 058
  8. INSULIN REGULAR [Concomitant]
     Active Substance: INSULIN NOS
     Dosage: UNK, QD
     Route: 042
  9. MEDIHONEY [Concomitant]
     Active Substance: HONEY
     Dosage: UNK, PRN
     Route: 061
  10. HUMALOG [Concomitant]
     Active Substance: INSULIN LISPRO
     Dosage: UNK, TID
     Route: 058
  11. CEFAZOLIN [Concomitant]
     Active Substance: CEFAZOLIN
  12. DEXTROSE IN WATER [Concomitant]
     Active Substance: DEXTROSE\WATER
     Dosage: UNK, PRN
     Route: 042
  13. VITAMIN D [Concomitant]
     Active Substance: CHOLECALCIFEROL
     Dosage: UNK, BID
     Route: 061
  14. ASPIRIN. [Concomitant]
     Active Substance: ASPIRIN
     Dosage: 81 MG, QD
     Route: 048
  15. VITAMIN A [Concomitant]
     Active Substance: VITAMIN A
     Dosage: UNK, BID
     Route: 061
  16. OXYGEN. [Concomitant]
     Active Substance: OXYGEN
     Dosage: 5 L, UNK
  17. MORPHINE [Concomitant]
     Active Substance: MORPHINE
     Dosage: UNK, PRN
     Route: 042
  18. ONDANSETRON [Concomitant]
     Active Substance: ONDANSETRON
     Dosage: UNK, PRN
     Route: 042
  19. OPSUMIT [Suspect]
     Active Substance: MACITENTAN
     Indication: PULMONARY HYPERTENSION
     Dosage: 10 MG, QD
     Route: 048
  20. GLUCAGON. [Concomitant]
     Active Substance: GLUCAGON
     Dosage: UNK, PRN
  21. INSULIN DETEMIR [Concomitant]
     Active Substance: INSULIN DETEMIR
     Dosage: UNK, QPM
     Route: 058
  22. PRAVASTATIN. [Concomitant]
     Active Substance: PRAVASTATIN
     Dosage: 80 MG, QD
     Route: 048

REACTIONS (29)
  - Cardiogenic shock [Fatal]
  - Leukocytosis [Unknown]
  - Anuria [Fatal]
  - Diarrhoea [Unknown]
  - Oliguria [Unknown]
  - Acidosis [Unknown]
  - Hyponatraemia [Unknown]
  - Lethargy [Unknown]
  - Productive cough [Unknown]
  - Oedema peripheral [Unknown]
  - Hyperkalaemia [Unknown]
  - Oxygen therapy [Unknown]
  - Vascular insufficiency [Unknown]
  - Blood osmolarity decreased [Unknown]
  - Acute kidney injury [Fatal]
  - Blood creatinine increased [Unknown]
  - Somnolence [Unknown]
  - Troponin increased [Unknown]
  - Prohormone brain natriuretic peptide [Unknown]
  - Blood alkaline phosphatase [Unknown]
  - Cardiac arrest [Fatal]
  - Pulmonary arterial hypertension [Fatal]
  - Nausea [Unknown]
  - Renal impairment [Unknown]
  - Disease progression [Fatal]
  - Dyspnoea [Unknown]
  - Vomiting [Unknown]
  - Limb injury [Unknown]
  - Skin ulcer [Unknown]

NARRATIVE: CASE EVENT DATE: 201704
